FAERS Safety Report 4497391-2 (Version None)
Quarter: 2004Q4

REPORT INFORMATION
  Report Type: 
  Country: None (occurrence: None)
  Receive Date: 20041110
  Receipt Date: 20041104
  Transmission Date: 20050328
  Serious: Yes (Other)
  Sender: FDA-Public Use
  Company Number: 200421078GDDC

PATIENT
  Age: 54 Year
  Sex: Female

DRUGS (2)
  1. RONAME [Suspect]
     Indication: DIABETES MELLITUS
     Dosage: DOSE: 1/2 TAB
     Route: 048
     Dates: start: 20040511, end: 20040723
  2. DIANBEN [Concomitant]
     Route: 048

REACTIONS (2)
  - EXTRASYSTOLES [None]
  - PALPITATIONS [None]
